FAERS Safety Report 9380897 (Version 3)
Quarter: 2013Q3

REPORT INFORMATION
  Report Type: Spontaneous
  Country: US (occurrence: US)
  Receive Date: 20130703
  Receipt Date: 20130722
  Transmission Date: 20140515
  Serious: Yes (Death, Life-Threatening, Hospitalization, Other)
  Sender: FDA-Public Use
  Company Number: US-MERCK-1307USA001002

PATIENT
  Age: 57 Year
  Sex: Male
  Weight: 83.45 kg

DRUGS (1)
  1. JANUMET [Suspect]
     Indication: DIABETES MELLITUS
     Dosage: DOSE 50MG/1000MG, BID
     Route: 048
     Dates: start: 20080407, end: 20100802

REACTIONS (2)
  - Pancreatic carcinoma [Fatal]
  - Pancreaticoduodenectomy [Unknown]
